FAERS Safety Report 16526603 (Version 1)
Quarter: 2019Q3

REPORT INFORMATION
  Report Type: Spontaneous
  Country: HR (occurrence: HR)
  Receive Date: 20190703
  Receipt Date: 20190703
  Transmission Date: 20191004
  Serious: Yes (Other)
  Sender: FDA-Public Use
  Company Number: HR-MYLANLABS-2019M1062036

PATIENT
  Age: 74 Year
  Sex: Female
  Weight: 69 kg

DRUGS (3)
  1. ANASTROZOLE. [Suspect]
     Active Substance: ANASTROZOLE
     Indication: BREAST CANCER FEMALE
     Dosage: 1 MG
     Route: 048
     Dates: start: 20180724
  2. KISQALI [Interacting]
     Active Substance: RIBOCICLIB
     Indication: BREAST CANCER FEMALE
     Dosage: 600 MG
     Route: 048
     Dates: start: 20180814
  3. IRUMED [Concomitant]
     Indication: ESSENTIAL HYPERTENSION
     Dosage: 10 MG
     Route: 048

REACTIONS (2)
  - Drug interaction [Unknown]
  - Transaminases increased [Recovering/Resolving]

NARRATIVE: CASE EVENT DATE: 20180911
